FAERS Safety Report 6733896-9 (Version None)
Quarter: 2010Q2

REPORT INFORMATION
  Report Type: 
  Country: None (occurrence: None)
  Receive Date: 20100520
  Receipt Date: 20100519
  Transmission Date: 20101027
  Serious: Yes (Death)
  Sender: FDA-Public Use
  Company Number: IT-ROCHE-701497

PATIENT
  Sex: Male

DRUGS (1)
  1. ROCEPHIN [Suspect]
     Indication: ERYSIPELAS
     Dosage: FREQUENCY: TOTAL
     Route: 042
     Dates: start: 20100405, end: 20100405

REACTIONS (2)
  - ANAPHYLACTIC SHOCK [None]
  - CARDIAC ARREST [None]
